FAERS Safety Report 15950162 (Version 1)
Quarter: 2019Q1

REPORT INFORMATION
  Report Type: Report from Study
  Country: CA (occurrence: CA)
  Receive Date: 20190212
  Receipt Date: 20190212
  Transmission Date: 20190417
  Serious: Yes (Hospitalization, Other)
  Sender: FDA-Public Use
  Company Number: PHHY2017CA093882

PATIENT
  Age: 72 Year
  Sex: Male
  Weight: 75.74 kg

DRUGS (17)
  1. ENTRESTO [Suspect]
     Active Substance: SACUBITRIL\VALSARTAN
     Dosage: 1 DF(24 MG SACUBITRIL/26 MG VALSARTAN), UNK
     Route: 048
     Dates: start: 20170614
  2. FLAGYL [Concomitant]
     Active Substance: METRONIDAZOLE\METRONIDAZOLE HYDROCHLORIDE
     Indication: PRODUCT USED FOR UNKNOWN INDICATION
     Route: 065
  3. ENTRESTO [Suspect]
     Active Substance: SACUBITRIL\VALSARTAN
     Dosage: 3 DF (49 MG SACUBITRIL/51 MG VALSARTAN), UNK
     Route: 048
     Dates: start: 20170109, end: 20170223
  4. ENTRESTO [Suspect]
     Active Substance: SACUBITRIL\VALSARTAN
     Dosage: 1 DF (24 MG SACUBITRIL/26 MG VALSARTAN), UNK
     Route: 048
     Dates: start: 20170223, end: 20170313
  5. NITROLINGUAL [Concomitant]
     Active Substance: NITROGLYCERIN
     Indication: PRODUCT USED FOR UNKNOWN INDICATION
     Dosage: 0.4 MG, UNK
     Route: 060
     Dates: start: 20121112
  6. CARVEDILOL. [Concomitant]
     Active Substance: CARVEDILOL
     Indication: PRODUCT USED FOR UNKNOWN INDICATION
     Dosage: 50 MG, UNK
     Route: 048
     Dates: start: 20170612
  7. ENTRESTO [Suspect]
     Active Substance: SACUBITRIL\VALSARTAN
     Dosage: 5 DF (24 MG SACUBITRIL/26 MG VALSARTAN), UNK
     Route: 048
     Dates: start: 20161123, end: 20161228
  8. ENTRESTO [Suspect]
     Active Substance: SACUBITRIL\VALSARTAN
     Dosage: 2 DF (24 MG SACUBITRIL/26 MG VALSARTAN), UNK
     Route: 048
     Dates: start: 20161228, end: 20170109
  9. ENTRESTO [Suspect]
     Active Substance: SACUBITRIL\VALSARTAN
     Dosage: 3 DF (24 MG SACUBITRIL/26 MG VALSARTAN), UNK
     Route: 048
     Dates: start: 20170313, end: 20170403
  10. CIPROFLOXACIN. [Concomitant]
     Active Substance: CIPROFLOXACIN
     Indication: PRODUCT USED FOR UNKNOWN INDICATION
     Route: 065
  11. ENTRESTO [Suspect]
     Active Substance: SACUBITRIL\VALSARTAN
     Dosage: 1 DF (49 MG SACUBITRIL/51 MG VALSARTAN), UNK
     Route: 048
     Dates: start: 20170109, end: 20170223
  12. ENTRESTO [Suspect]
     Active Substance: SACUBITRIL\VALSARTAN
     Dosage: 2 DF (49 MG SACUBITRIL/51 MG VALSARTAN), UNK
     Route: 048
     Dates: start: 20161228, end: 20170109
  13. SIMVASTATIN. [Concomitant]
     Active Substance: SIMVASTATIN
     Indication: PRODUCT USED FOR UNKNOWN INDICATION
     Dosage: 20 MG, UNK
     Route: 048
     Dates: start: 20061201
  14. ENTRESTO [Suspect]
     Active Substance: SACUBITRIL\VALSARTAN
     Indication: CARDIAC FAILURE
     Dosage: 2 DF (24 MG SACUBITRIL/26 MG VALSARTAN), UNK
     Route: 048
     Dates: start: 20160711, end: 20160922
  15. ENTRESTO [Suspect]
     Active Substance: SACUBITRIL\VALSARTAN
     Dosage: 4 DF (24 MG SACUBITRIL/26 MG VALSARTAN), UNK
     Route: 048
     Dates: start: 20160922, end: 20161123
  16. ENTRESTO [Suspect]
     Active Substance: SACUBITRIL\VALSARTAN
     Dosage: 2 DF (49 MG SACUBITRIL/51 MG VALSARTAN), UNK
     Route: 048
     Dates: start: 20170223, end: 20170313
  17. ENTRESTO [Suspect]
     Active Substance: SACUBITRIL\VALSARTAN
     Dosage: 2 DF (24 MG SACUBITRIL/26 MG VALSARTAN), UNK
     Route: 048
     Dates: start: 20170403, end: 20170531

REACTIONS (7)
  - Syncope [Recovered/Resolved]
  - Hyperhidrosis [Recovered/Resolved]
  - Dyspnoea [Not Recovered/Not Resolved]
  - White blood cell count increased [Unknown]
  - Cholecystitis [Recovered/Resolved]
  - Hot flush [Recovered/Resolved]
  - Abdominal pain [Recovered/Resolved]

NARRATIVE: CASE EVENT DATE: 20170608
